FAERS Safety Report 8345511-1 (Version None)
Quarter: 2012Q2

REPORT INFORMATION
  Report Type: 
  Country: None (occurrence: None)
  Receive Date: 20120508
  Receipt Date: 20120410
  Transmission Date: 20120825
  Serious: Yes (Hospitalization)
  Sender: FDA-Public Use
  Company Number: PHHO2012SG006981

PATIENT
  Sex: Male
  Weight: 95 kg

DRUGS (9)
  1. WARFARIN SODIUM [Suspect]
     Indication: CARDIOVASCULAR DISORDER
     Dosage: 3 MG, OM
     Route: 048
     Dates: start: 20101015
  2. BLINDED NO TREATMENT RECEIVED [Suspect]
     Indication: CARDIAC FAILURE CHRONIC
     Dosage: DOUBLE BLINDED
     Route: 048
     Dates: start: 20110110
  3. ENALAPRIL MALEATE [Suspect]
     Indication: CARDIAC FAILURE CHRONIC
     Dosage: DOUBLE BLINDED
     Route: 048
     Dates: start: 20110110
  4. VALSARTAN [Suspect]
     Indication: CARDIAC FAILURE CHRONIC
     Dosage: DOUBLE BLINDED
     Route: 048
     Dates: start: 20110110
  5. ASPIRIN [Concomitant]
     Indication: CARDIOVASCULAR DISORDER
     Dosage: 100, MG OM
     Route: 048
     Dates: start: 20090406
  6. DIGOXIN [Concomitant]
     Indication: CARDIAC FAILURE
     Dosage: 62.5 MG, OM
     Route: 048
     Dates: start: 20100723
  7. ISOSORBIDE MONONITRATE [Concomitant]
     Indication: CARDIOVASCULAR DISORDER
     Dosage: 30 MG, OM
     Route: 048
     Dates: start: 20091113
  8. FUROSEMIDE [Concomitant]
     Indication: CARDIAC FAILURE
     Dosage: 40 MG, OM
     Route: 048
     Dates: start: 20090108
  9. SPIRONOLACTONE [Concomitant]
     Indication: CARDIAC FAILURE
     Dosage: 25 MG, OM
     Route: 048
     Dates: start: 20091113

REACTIONS (2)
  - HAEMOPTYSIS [None]
  - VIRAL UPPER RESPIRATORY TRACT INFECTION [None]
